FAERS Safety Report 5891917-X (Version None)
Quarter: 2008Q3

REPORT INFORMATION
  Report Type: 
  Country: None (occurrence: None)
  Receive Date: 20080922
  Receipt Date: 20080912
  Transmission Date: 20090109
  Serious: Yes (Other)
  Sender: FDA-Public Use
  Company Number: JP-ASTRAZENECA-2008AP05534

PATIENT
  Age: 56 Year
  Sex: Female

DRUGS (1)
  1. MARCAINE [Suspect]
     Indication: NERVE BLOCK

REACTIONS (3)
  - CLONUS [None]
  - MUSCULAR WEAKNESS [None]
  - PAIN [None]
